FAERS Safety Report 6000599-8 (Version None)
Quarter: 2008Q4

REPORT INFORMATION
  Report Type: 
  Country: None (occurrence: None)
  Receive Date: 20081212
  Receipt Date: 20080710
  Transmission Date: 20090506
  Serious: Yes (Other)
  Sender: FDA-Public Use
  Company Number: 08-001128

PATIENT
  Sex: Female

DRUGS (4)
  1. FEMHRT [Suspect]
     Indication: MENOPAUSAL SYMPTOMS
     Dates: start: 19990101
  2. PREMPRO [Suspect]
     Indication: MENOPAUSAL SYMPTOMS
     Dates: start: 19990101
  3. PREMPHASE (PREMARIN;CYCRIN 14/14) [Suspect]
     Indication: MENOPAUSAL SYMPTOMS
     Dates: start: 19990101
  4. ESTRATAB [Suspect]
     Indication: MENOPAUSAL SYMPTOMS
     Dates: start: 19990101

REACTIONS (1)
  - BREAST CANCER [None]
